FAERS Safety Report 7869538-9 (Version None)
Quarter: 2011Q4

REPORT INFORMATION
  Report Type: 
  Country: None (occurrence: None)
  Receive Date: 20111028
  Receipt Date: 20110105
  Transmission Date: 20120403
  Serious: No
  Sender: FDA-Public Use
  Company Number: US-AMGEN-USASP2011000513

PATIENT
  Age: 66 Year
  Sex: Female

DRUGS (2)
  1. ENBREL [Suspect]
     Indication: PSORIATIC ARTHROPATHY
     Dosage: 50 MG, QWK
     Dates: start: 20060101
  2. ENBREL [Suspect]
     Indication: PSORIASIS

REACTIONS (7)
  - DIABETES MELLITUS [None]
  - GAIT DISTURBANCE [None]
  - NEEDLE ISSUE [None]
  - INJECTION SITE SWELLING [None]
  - METABOLIC DISORDER [None]
  - JOINT RANGE OF MOTION DECREASED [None]
  - PSORIATIC ARTHROPATHY [None]
